FAERS Safety Report 5145548-X (Version None)
Quarter: 2006Q4

REPORT INFORMATION
  Report Type: 
  Country: None (occurrence: None)
  Receive Date: 20061101
  Receipt Date: 20061018
  Transmission Date: 20070319
  Serious: No
  Sender: FDA-Public Use
  Company Number: 163-20785-06100859

PATIENT
  Age: 44 Year
  Sex: Male
  Weight: 58.9676 kg

DRUGS (12)
  1. THALOMID [Suspect]
     Indication: ASTROCYTOMA
     Dosage: 200 MG, 4 IN 1 D, ORAL; SEE IMAGE
     Route: 048
     Dates: start: 20061016
  2. THALOMID [Suspect]
     Indication: ASTROCYTOMA
     Dosage: 200 MG, 4 IN 1 D, ORAL; SEE IMAGE
     Route: 048
     Dates: start: 20061018
  3. MORPHINE [Concomitant]
  4. PEPCID [Concomitant]
  5. DOCUSATE (DOCUSATE) [Concomitant]
  6. DEXAMETHASONE TAB [Concomitant]
  7. AMITRIPTYLINE HCL [Concomitant]
  8. DILANTIN [Concomitant]
  9. BENADRYL (BENADRYL ALLERGY) [Concomitant]
  10. ATIVAN [Concomitant]
  11. LIDODERM PATCH (LIDOCAINE) (POULTICE OR PATCH) [Concomitant]
  12. MIRALAX [Concomitant]

REACTIONS (7)
  - BAND NEUTROPHIL COUNT INCREASED [None]
  - DEHYDRATION [None]
  - FATIGUE [None]
  - HYPOAESTHESIA [None]
  - LYMPHOCYTE COUNT DECREASED [None]
  - ORAL INTAKE REDUCED [None]
  - WHITE BLOOD CELL COUNT INCREASED [None]
